FAERS Safety Report 10745320 (Version 1)
Quarter: 2015Q1

REPORT INFORMATION
  Report Type: Spontaneous
  Country: US (occurrence: US)
  Receive Date: 20150128
  Receipt Date: 20150128
  Transmission Date: 20150721
  Serious: Yes (Other)
  Sender: FDA-Public Use
  Company Number: US-ZOGENIX, INC.-2015ZX000012

PATIENT
  Sex: Female

DRUGS (2)
  1. ZOHYDRO [Suspect]
     Active Substance: HYDROCODONE BITARTRATE
     Indication: PAIN
     Route: 048
  2. ZOHYDRO [Suspect]
     Active Substance: HYDROCODONE BITARTRATE
     Route: 048

REACTIONS (2)
  - Cervix carcinoma [Unknown]
  - Pain [Unknown]
